FAERS Safety Report 6436914-0 (Version None)
Quarter: 2009Q4

REPORT INFORMATION
  Report Type: 
  Country: None (occurrence: None)
  Receive Date: 20091109
  Receipt Date: 20091027
  Transmission Date: 20100525
  Serious: Yes (Hospitalization)
  Sender: FDA-Public Use
  Company Number: 2009008350

PATIENT
  Age: 76 Year
  Sex: Female

DRUGS (2)
  1. TREANDA [Suspect]
     Indication: CHRONIC LYMPHOCYTIC LEUKAEMIA
     Dosage: (130 MG/M2),INTRAVENOUS ; (130 MG/M2),INTRAVENOUS
     Route: 042
     Dates: start: 20090430
  2. TREANDA [Suspect]
     Indication: CHRONIC LYMPHOCYTIC LEUKAEMIA
     Dosage: (130 MG/M2),INTRAVENOUS ; (130 MG/M2),INTRAVENOUS
     Route: 042
     Dates: start: 20090514

REACTIONS (4)
  - HAEMOGLOBIN DECREASED [None]
  - PEMPHIGUS [None]
  - PHOTOSENSITIVITY REACTION [None]
  - SUPERINFECTION BACTERIAL [None]
